FAERS Safety Report 5818388-3 (Version None)
Quarter: 2008Q3

REPORT INFORMATION
  Report Type: 
  Country: None (occurrence: None)
  Receive Date: 20080718
  Receipt Date: 20080624
  Transmission Date: 20090109
  Serious: Yes (Life-Threatening)
  Sender: FDA-Public Use
  Company Number: 035-20785-08070766

PATIENT
  Age: 32 Year
  Sex: Female

DRUGS (1)
  1. THALIDOMIDE [Suspect]
     Indication: APHTHOUS STOMATITIS
     Dosage: 25 MG, DAILY, ORAL
     Route: 048
     Dates: start: 20051115, end: 20080415

REACTIONS (3)
  - NON-SMALL CELL LUNG CANCER METASTATIC [None]
  - PAIN IN EXTREMITY [None]
  - VOMITING [None]
